FAERS Safety Report 23632230 (Version 2)
Quarter: 2024Q1

REPORT INFORMATION
  Report Type: Spontaneous
  Country: US (occurrence: US)
  Receive Date: 20240314
  Receipt Date: 20240321
  Transmission Date: 20240410
  Serious: Yes (Hospitalization, Other)
  Sender: FDA-Public Use
  Company Number: US-MLMSERVICE-20240301-4861194-1

PATIENT
  Age: 76 Year
  Sex: Female

DRUGS (2)
  1. SULFAMETHOXAZOLE\TRIMETHOPRIM [Suspect]
     Active Substance: SULFAMETHOXAZOLE\TRIMETHOPRIM
     Indication: Urinary tract infection
     Dosage: UNK
  2. PHENAZOPYRIDINE [Suspect]
     Active Substance: PHENAZOPYRIDINE
     Indication: Urinary tract infection
     Dosage: UNK

REACTIONS (4)
  - Methaemoglobinaemia [Recovered/Resolved]
  - Haemolytic anaemia [Recovered/Resolved]
  - Hyperbilirubinaemia [Recovered/Resolved]
  - Haemolysis [Recovered/Resolved]
